FAERS Safety Report 4959764-0 (Version None)
Quarter: 2006Q1

REPORT INFORMATION
  Report Type: 
  Country: None (occurrence: None)
  Receive Date: 20060324
  Receipt Date: 20060315
  Transmission Date: 20060701
  Serious: Yes (Death)
  Sender: FDA-Public Use
  Company Number: 163-20785-05110084

PATIENT
  Age: 71 Year
  Sex: Male
  Weight: 102.5129 kg

DRUGS (8)
  1. THALOMID [Suspect]
     Indication: MULTIPLE MYELOMA
     Dosage: ORAL; 50 MG, DAILY, ORAL
     Route: 048
     Dates: start: 20000201, end: 20010301
  2. THALOMID [Suspect]
     Indication: MULTIPLE MYELOMA
     Dosage: ORAL; 50 MG, DAILY, ORAL
     Route: 048
     Dates: start: 20040205, end: 20040324
  3. DEXAMETHASONE [Suspect]
     Indication: MULTIPLE MYELOMA
     Dates: start: 20000201
  4. ZIAC (BISELECT) [Concomitant]
  5. PRAVACHOL [Concomitant]
  6. AREDIA [Concomitant]
  7. IMMUNE GLOBULIN INTRAVENOUS (HUMAN) [Concomitant]
  8. AVAPRO [Concomitant]

REACTIONS (3)
  - MYOPATHY STEROID [None]
  - NEUROPATHY PERIPHERAL [None]
  - UROSEPSIS [None]
